FAERS Safety Report 17701057 (Version 1)
Quarter: 2020Q2

REPORT INFORMATION
  Report Type: Spontaneous
  Country: US (occurrence: NG)
  Receive Date: 20200423
  Receipt Date: 20200423
  Transmission Date: 20200714
  Serious: No
  Sender: FDA-Public Use
  Company Number: US-GALDERMA-US2020007484

PATIENT
  Age: 33 Year
  Sex: Female

DRUGS (2)
  1. DIFFERIN GEL [Suspect]
     Active Substance: ADAPALENE
     Indication: ACNE
     Dosage: 0.1%
     Route: 061
     Dates: start: 2019
  2. DIFFERIN DARK SPOT CORRECTING SERUM [Suspect]
     Active Substance: HYDROQUINONE
     Indication: SKIN HYPERPIGMENTATION
     Route: 061
     Dates: start: 20200205, end: 20200206

REACTIONS (4)
  - Dry skin [Not Recovered/Not Resolved]
  - Product use issue [Recovered/Resolved]
  - Throat irritation [Not Recovered/Not Resolved]
  - Discomfort [Not Recovered/Not Resolved]

NARRATIVE: CASE EVENT DATE: 20200205
